FAERS Safety Report 6662565-9 (Version None)
Quarter: 2010Q1

REPORT INFORMATION
  Report Type: 
  Country: None (occurrence: None)
  Receive Date: 20100329
  Receipt Date: 20100312
  Transmission Date: 20100710
  Serious: Yes (Hospitalization)
  Sender: FDA-Public Use
  Company Number: 2009002590

PATIENT
  Age: 59 Year
  Sex: Female

DRUGS (12)
  1. ERLOTINIB (ERLOTINIB) (TABLET) (ERLOTINIB) [Suspect]
     Indication: LUNG NEOPLASM MALIGNANT
     Dosage: (150 MG,QD),ORAL
     Route: 048
     Dates: start: 20090629, end: 20090723
  2. TAXOTERE [Suspect]
     Indication: LUNG NEOPLASM MALIGNANT
     Dosage: (Q3W),INTRAVENOUS
     Route: 042
     Dates: start: 20090626, end: 20090717
  3. CARVEDILOL [Concomitant]
  4. GRANULOKINE [Concomitant]
  5. ARANESP [Concomitant]
  6. PRILOSEC [Concomitant]
  7. BROMAZEPAM (BROMAZEPAM) [Concomitant]
  8. DIORAN [Concomitant]
  9. BISOPROLOL FUMARATE [Concomitant]
  10. MEDROL [Concomitant]
  11. ONDANSETRON HYDROCHLORIDE [Concomitant]
  12. DEXAMETHASONE [Concomitant]

REACTIONS (4)
  - ANAEMIA [None]
  - ARRHYTHMIA [None]
  - ATRIAL FIBRILLATION [None]
  - FEBRILE NEUTROPENIA [None]
